FAERS Safety Report 8462134-4 (Version None)
Quarter: 2012Q2

REPORT INFORMATION
  Report Type: 
  Country: None (occurrence: None)
  Receive Date: 20120625
  Receipt Date: 20120615
  Transmission Date: 20120825
  Serious: Yes (Death)
  Sender: FDA-Public Use
  Company Number: DK-JNJFOC-20120213904

PATIENT
  Sex: Male

DRUGS (4)
  1. SULFASALAZINE [Concomitant]
     Indication: RHEUMATOID ARTHRITIS
     Dates: start: 20050422, end: 20090908
  2. METHOTREXATE [Suspect]
     Indication: RHEUMATOID ARTHRITIS
     Dates: start: 20080215, end: 20090908
  3. REMICADE [Suspect]
     Indication: RHEUMATOID ARTHRITIS
     Route: 042
     Dates: start: 20090618, end: 20090721
  4. METHOTREXATE [Suspect]
     Dates: end: 20091008

REACTIONS (2)
  - LUNG CANCER METASTATIC [None]
  - SMALL CELL LUNG CANCER STAGE UNSPECIFIED [None]
